FAERS Safety Report 25184636 (Version 2)
Quarter: 2025Q2

REPORT INFORMATION
  Report Type: Report from Study
  Country: CA (occurrence: CA)
  Receive Date: 20250410
  Receipt Date: 20250613
  Transmission Date: 20250717
  Serious: Yes (Hospitalization, Other)
  Sender: TAKEDA
  Company Number: CA-TAKEDA-2025TUS011907

PATIENT
  Age: 26 Year
  Sex: Male

DRUGS (5)
  1. VEDOLIZUMAB [Suspect]
     Active Substance: VEDOLIZUMAB
     Indication: Colitis ulcerative
  2. VEDOLIZUMAB [Suspect]
     Active Substance: VEDOLIZUMAB
     Dosage: 300 MILLIGRAM, Q4WEEKS
     Dates: start: 20250213
  3. VEDOLIZUMAB [Suspect]
     Active Substance: VEDOLIZUMAB
     Dosage: 300 MILLIGRAM, Q4WEEKS
  4. RINVOQ [Concomitant]
     Active Substance: UPADACITINIB
  5. ENTOCORT [Concomitant]
     Active Substance: BUDESONIDE

REACTIONS (9)
  - Colitis ulcerative [Not Recovered/Not Resolved]
  - Infection [Unknown]
  - Off label use [Unknown]
  - Frequent bowel movements [Unknown]
  - White blood cell count increased [Unknown]
  - Platelet count increased [Unknown]
  - Impaired work ability [Unknown]
  - Social problem [Unknown]
  - Flatulence [Unknown]

NARRATIVE: CASE EVENT DATE: 20250213
